FAERS Safety Report 8157357-8 (Version None)
Quarter: 2012Q1

REPORT INFORMATION
  Report Type: 
  Country: None (occurrence: None)
  Receive Date: 20120222
  Receipt Date: 20120215
  Transmission Date: 20120608
  Serious: Yes (Hospitalization, Other)
  Sender: FDA-Public Use
  Company Number: US-ROCHE-798891

PATIENT
  Sex: Male

DRUGS (8)
  1. BONIVA [Suspect]
  2. VITAMIN D [Concomitant]
     Indication: OSTEOPOROSIS
  3. CALCIUM [Concomitant]
     Indication: OSTEOPOROSIS
  4. BONIVA [Suspect]
     Indication: OSTEOPOROSIS
     Route: 048
  5. HYDROCORTISONE [Concomitant]
     Indication: BACK PAIN
  6. STRONTIUM [Concomitant]
     Indication: OSTEOPOROSIS
  7. PREDNISONE [Concomitant]
     Indication: GASTROINTESTINAL DISORDER
  8. ACETAMINOFEN [Concomitant]
     Indication: BACK PAIN

REACTIONS (3)
  - COMPRESSION FRACTURE [None]
  - FRACTURE [None]
  - FEELING JITTERY [None]
